FAERS Safety Report 8776448 (Version 5)
Quarter: 2013Q3

REPORT INFORMATION
  Report Type: Report from Study
  Country: US (occurrence: US)
  Receive Date: 20120910
  Receipt Date: 20130802
  Transmission Date: 20140515
  Serious: Yes (Other)
  Sender: FDA-Public Use
  Company Number: PHEH2012US007691

PATIENT
  Sex: Female

DRUGS (2)
  1. TASIGNA [Suspect]
     Indication: ACUTE MYELOID LEUKAEMIA
     Dosage: 450 MG, QD
     Route: 048
     Dates: start: 20120110
  2. TASIGNA [Suspect]
     Indication: OFF LABEL USE

REACTIONS (11)
  - Neuropathy peripheral [Unknown]
  - Pain in extremity [Unknown]
  - Burning sensation [Unknown]
  - Arthropod sting [Unknown]
  - Pruritus [Unknown]
  - Local swelling [Unknown]
  - Fatigue [Unknown]
  - Alopecia [Unknown]
  - Weight increased [Unknown]
  - Nasopharyngitis [Unknown]
  - Incorrect dose administered [Unknown]
